FAERS Safety Report 7517289-2 (Version None)
Quarter: 2011Q2

REPORT INFORMATION
  Report Type: 
  Country: None (occurrence: None)
  Receive Date: 20110601
  Receipt Date: 20110526
  Transmission Date: 20111010
  Serious: Yes (Hospitalization)
  Sender: FDA-Public Use
  Company Number: GB-ROCHE-776445

PATIENT
  Sex: Female
  Weight: 91.4 kg

DRUGS (9)
  1. LANSOPRAZOLE [Concomitant]
     Dates: start: 20070101
  2. LEVOTHYROXINE SODIUM [Concomitant]
     Dates: start: 19950101
  3. MOVIPREP [Concomitant]
     Dosage: DOSE FORM : 1 SACHET
     Dates: start: 20110301
  4. METOCLOPRAMIDE [Concomitant]
  5. PACLITAXEL [Suspect]
     Indication: BREAST CANCER
     Dosage: LAST DOSE PRIOR TO SAE: 06 MAY 2011
     Route: 042
     Dates: start: 20110304, end: 20110526
  6. ORAMORPH SR [Concomitant]
     Dates: start: 20110309
  7. MST [Concomitant]
     Dates: start: 20110309
  8. RANITIDINE [Concomitant]
  9. BEVACIZUMAB [Suspect]
     Indication: BREAST CANCER
     Dosage: LAST DOSE PRIOR TO SAE: 29 APRIL 2011
     Route: 042
     Dates: start: 20110304, end: 20110526

REACTIONS (2)
  - PLEURAL EFFUSION [None]
  - DYSPNOEA [None]
